FAERS Safety Report 5213406-8 (Version None)
Quarter: 2007Q1

REPORT INFORMATION
  Report Type: 
  Country: None (occurrence: None)
  Receive Date: 20070119
  Receipt Date: 20070108
  Transmission Date: 20070707
  Serious: Yes (Hospitalization)
  Sender: FDA-Public Use
  Company Number: DE-AMGEN-UK201668

PATIENT
  Sex: Female

DRUGS (1)
  1. NEUPOGEN [Suspect]
     Indication: PERIPHERAL BLOOD STEM CELL APHERESIS
     Route: 058
     Dates: start: 20061123, end: 20061125

REACTIONS (10)
  - BLOOD CREATININE INCREASED [None]
  - BONE PAIN [None]
  - GLOMERULONEPHRITIS [None]
  - HAEMATURIA [None]
  - HYPERTENSION [None]
  - MYALGIA [None]
  - MYOGLOBIN BLOOD INCREASED [None]
  - MYOGLOBIN URINE PRESENT [None]
  - PROTEINURIA [None]
  - RENAL FAILURE ACUTE [None]
